FAERS Safety Report 25268548 (Version 1)
Quarter: 2025Q2

REPORT INFORMATION
  Report Type: Spontaneous
  Country: US (occurrence: None)
  Receive Date: 20250502
  Receipt Date: 20250502
  Transmission Date: 20250716
  Serious: Yes (Hospitalization)
  Sender: FDA-CTU
  Company Number: None

PATIENT
  Age: 79 Year
  Sex: Female

DRUGS (1)
  1. NUPLAZID [Suspect]
     Active Substance: PIMAVANSERIN TARTRATE
     Indication: Hallucination
     Dosage: 34 MG DAILY ORAL
     Route: 048
     Dates: start: 20250311, end: 20250501

REACTIONS (6)
  - Disorientation [None]
  - Aortic aneurysm [None]
  - Thrombosis [None]
  - Urethral cancer recurrent [None]
  - Hepatic cancer recurrent [None]
  - Thyroid cancer recurrent [None]

NARRATIVE: CASE EVENT DATE: 20250328
